FAERS Safety Report 6306730-9 (Version None)
Quarter: 2009Q3

REPORT INFORMATION
  Report Type: 
  Country: None (occurrence: None)
  Receive Date: 20090812
  Receipt Date: 20090617
  Transmission Date: 20100115
  Serious: No
  Sender: FDA-Public Use
  Company Number: A0792287A

PATIENT
  Sex: Female

DRUGS (1)
  1. VERAMYST [Suspect]
     Dates: start: 20090603, end: 20090616

REACTIONS (7)
  - ADVERSE DRUG REACTION [None]
  - ASTHENIA [None]
  - COUGH [None]
  - HEADACHE [None]
  - MYALGIA [None]
  - PYREXIA [None]
  - THROAT TIGHTNESS [None]
